FAERS Safety Report 10258055 (Version 1)
Quarter: 2014Q2

REPORT INFORMATION
  Report Type: Spontaneous
  Country: US (occurrence: US)
  Receive Date: 20140625
  Receipt Date: 20140625
  Transmission Date: 20141212
  Serious: Yes (Other)
  Sender: FDA-Public Use
  Company Number: US-PFIZER INC-2014172209

PATIENT
  Sex: 0

DRUGS (1)
  1. MEDROXYPROGESTERONE ACETATE [Suspect]
     Indication: MENSTRUATION IRREGULAR
     Dosage: 5 MG TABLETS, UNK

REACTIONS (1)
  - Vaginal haemorrhage [Unknown]
